FAERS Safety Report 5693552-5 (Version None)
Quarter: 2008Q2

REPORT INFORMATION
  Report Type: 
  Country: None (occurrence: None)
  Receive Date: 20080402
  Receipt Date: 20080402
  Transmission Date: 20081010
  Serious: No
  Sender: FDA-Public Use
  Company Number: None

PATIENT
  Weight: 63.05 kg

DRUGS (1)
  1. LIPITOR [Suspect]
     Indication: HYPERLIPIDAEMIA
     Dosage: 40MG. ONCE DAILY PO
     Route: 048
     Dates: start: 20080114, end: 20080201

REACTIONS (4)
  - MUSCLE ATROPHY [None]
  - MYALGIA [None]
  - MYOSITIS [None]
  - TENDONITIS [None]
